FAERS Safety Report 11005316 (Version 1)
Quarter: 2015Q2

REPORT INFORMATION
  Report Type: Report from Study
  Country: TN (occurrence: TN)
  Receive Date: 20150409
  Receipt Date: 20150409
  Transmission Date: 20150821
  Serious: Yes (Death)
  Sender: FDA-Public Use
  Company Number: TN-SA-2015SA043211

PATIENT
  Age: 67 Year
  Sex: Male

DRUGS (7)
  1. ASPEGIC [Concomitant]
     Active Substance: ASPIRIN DL-LYSINE
     Dosage: STOP DATE:12-DEC-2014
     Route: 048
     Dates: end: 20141212
  2. PLAVIX [Suspect]
     Active Substance: CLOPIDOGREL BISULFATE
     Indication: MYOCARDIAL INFARCTION
     Route: 048
     Dates: start: 20141125, end: 20141212
  3. CINCOR [Concomitant]
     Dosage: STOP DATE: 12-DEC-2014
     Route: 048
     Dates: end: 20141212
  4. ATOR [Concomitant]
     Active Substance: ATORVASTATIN CALCIUM
     Dosage: STOP DATE: 12-DEC-2014
     Route: 048
     Dates: end: 20141212
  5. LOPRIL [Concomitant]
     Active Substance: LISINOPRIL
     Dosage: STOP DATE: 12-DEC-2014
     Route: 058
     Dates: end: 20141212
  6. INSULIN [Concomitant]
     Active Substance: INSULIN NOS
     Dates: end: 20141212
  7. FAMODINE [Concomitant]
     Dates: end: 20141212

REACTIONS (1)
  - Cardiac arrest [Fatal]

NARRATIVE: CASE EVENT DATE: 20141212
